FAERS Safety Report 10947547 (Version 1)
Quarter: 2015Q1

REPORT INFORMATION
  Report Type: Spontaneous
  Country: US (occurrence: None)
  Receive Date: 20150212
  Receipt Date: 20150212
  Transmission Date: 20150721
  Serious: No
  Sender: FDA-Public Use
  Company Number: TPA2011A07560

PATIENT
  Age: 74 Year
  Sex: Male
  Weight: 83.92 kg

DRUGS (5)
  1. METOPROLOL (METOPROLOL) [Concomitant]
     Active Substance: METOPROLOL
  2. TIMOPTIC (TIMOLOL MALEATE) [Concomitant]
  3. LOSARTAN (LOSARTAN) [Concomitant]
     Active Substance: LOSARTAN
  4. ULORIC [Suspect]
     Active Substance: FEBUXOSTAT
     Indication: GOUT
     Route: 048
     Dates: start: 201109, end: 20111105
  5. ENALAPRIL/HCTZ (HYDROCHLOROTHIAZIDE, ENALAPRIL) [Concomitant]

REACTIONS (1)
  - Bronchitis [None]
